FAERS Safety Report 18100775 (Version 1)
Quarter: 2020Q3

REPORT INFORMATION
  Report Type: Spontaneous
  Country: DE (occurrence: DE)
  Receive Date: 20200801
  Receipt Date: 20200801
  Transmission Date: 20201103
  Serious: Yes (Congenital Anomaly, Other)
  Sender: FDA-Public Use
  Company Number: DE-HETERO-HET2020DE00839

PATIENT
  Sex: Male
  Weight: 3.5 kg

DRUGS (2)
  1. CITALOPRAM [Suspect]
     Active Substance: CITALOPRAM HYDROBROMIDE
     Indication: PANIC DISORDER
     Dosage: 10 MG, QD (9.4 TO 39.5. GESTATIONAL WEEK)
     Route: 064
     Dates: start: 20190529, end: 20191226
  2. ESCITALOPRAM [Suspect]
     Active Substance: ESCITALOPRAM OXALATE
     Indication: PANIC DISORDER
     Dosage: 10 MG, QD (0 TO 9.3. GESTATIONAL WEEK)
     Route: 064
     Dates: start: 20190323, end: 20190528

REACTIONS (4)
  - Foetal exposure during pregnancy [None]
  - Neonatal pneumonia [Recovered/Resolved]
  - Congenital hydronephrosis [Unknown]
  - Congenital ureteropelvic junction obstruction [Recovered/Resolved]
